FAERS Safety Report 20907011 (Version 1)
Quarter: 2022Q2

REPORT INFORMATION
  Report Type: Spontaneous
  Country: US (occurrence: US)
  Receive Date: 20220602
  Receipt Date: 20220602
  Transmission Date: 20220721
  Serious: Yes (Hospitalization, Other)
  Sender: FDA-Public Use
  Company Number: US-TEVA-2022-US-2040691

PATIENT
  Age: 60 Year
  Sex: Female
  Weight: 64.41 kg

DRUGS (22)
  1. AJOVY [Suspect]
     Active Substance: FREMANEZUMAB-VFRM
     Indication: Migraine
     Dosage: 225/1.5 MG/ML,1 INJECTION MONTHLY
     Route: 065
  2. AJOVY [Suspect]
     Active Substance: FREMANEZUMAB-VFRM
  3. CLARITIN-D NOS [Concomitant]
     Active Substance: LORATADINE\PSEUDOEPHEDRINE SULFATE
     Indication: Hypersensitivity
  4. VITAMINS [Concomitant]
     Active Substance: VITAMINS
  5. CALCIUM\VITAMIN D [Concomitant]
     Active Substance: CALCIUM\VITAMIN D
  6. GABAPENTIN [Concomitant]
     Active Substance: GABAPENTIN
  7. Sennokot [Concomitant]
  8. BISACODYL [Concomitant]
     Active Substance: BISACODYL
  9. FAMOTIDINE [Concomitant]
     Active Substance: FAMOTIDINE
     Dosage: AS NEEDED
  10. METOCLOPRAMIDE [Concomitant]
     Active Substance: METOCLOPRAMIDE
     Dosage: 1 OR 2 TABLETS DAILY
  11. CARBIDOPA AND LEVODOPA [Concomitant]
     Active Substance: CARBIDOPA\LEVODOPA
     Indication: Restless legs syndrome
     Dosage: 50 MILLIGRAM DAILY; ER ,NIGHTLY
  12. CARBIDOPA AND LEVODOPA [Concomitant]
     Active Substance: CARBIDOPA\LEVODOPA
     Dosage: 2 TABLETS AT 7:00 AM, 10:30 AM, 2:00 PM, AND 5:00 PM DAILY
  13. AMANTADINE [Concomitant]
     Active Substance: AMANTADINE
     Dosage: 200 MILLIGRAM DAILY;
  14. MIRTAZAPINE [Concomitant]
     Active Substance: MIRTAZAPINE
     Dosage: 40 MILLIGRAM DAILY;
  15. MYRBETRIQ [Concomitant]
     Active Substance: MIRABEGRON
     Indication: Bladder disorder
  16. ROPINIROLE [Concomitant]
     Active Substance: ROPINIROLE
     Indication: Restless legs syndrome
     Dosage: 4 MILLIGRAM DAILY; NIGHTLY
  17. UBRELVY [Concomitant]
     Active Substance: UBROGEPANT
     Indication: Migraine
  18. LACTULOSE [Concomitant]
     Active Substance: LACTULOSE
  19. ARIPIPRAZOLE [Concomitant]
     Active Substance: ARIPIPRAZOLE
  20. BACLOFEN [Concomitant]
     Active Substance: BACLOFEN
  21. FUROSEMIDE [Concomitant]
     Active Substance: FUROSEMIDE
  22. ASPIRIN [Concomitant]
     Active Substance: ASPIRIN

REACTIONS (4)
  - Transient ischaemic attack [Recovered/Resolved]
  - Hypoaesthesia [Recovering/Resolving]
  - Paraesthesia [Recovering/Resolving]
  - Nasal discomfort [Not Recovered/Not Resolved]

NARRATIVE: CASE EVENT DATE: 20220401
